FAERS Safety Report 13963290 (Version 1)
Quarter: 2017Q3

REPORT INFORMATION
  Report Type: Spontaneous
  Country: US (occurrence: US)
  Receive Date: 20170913
  Receipt Date: 20170913
  Transmission Date: 20171128
  Serious: Yes (Other)
  Sender: FDA-Public Use
  Company Number: US-DRREDDYS-USA/USA/17/0093050

PATIENT
  Age: 48 Year
  Sex: Male

DRUGS (8)
  1. CITALOPRAM [Suspect]
     Active Substance: CITALOPRAM HYDROBROMIDE
     Indication: PRODUCT USED FOR UNKNOWN INDICATION
     Route: 065
  2. QUETIAPINE FUMARATE TABLETS [Suspect]
     Active Substance: QUETIAPINE FUMARATE
     Dosage: 50 MG IN THE MORNING AND 200 MG IN THE EVENING
     Route: 065
  3. BUPROPION. [Suspect]
     Active Substance: BUPROPION
     Route: 065
  4. ZIPRASIDONE. [Suspect]
     Active Substance: ZIPRASIDONE
     Indication: PARANOIA
     Route: 065
  5. QUETIAPINE FUMARATE TABLETS [Suspect]
     Active Substance: QUETIAPINE FUMARATE
     Route: 065
  6. BUPROPION. [Suspect]
     Active Substance: BUPROPION
     Indication: MAJOR DEPRESSION
     Dosage: EVERY MORNING
     Route: 065
  7. BUPROPION. [Suspect]
     Active Substance: BUPROPION
     Route: 065
  8. QUETIAPINE FUMARATE TABLETS [Suspect]
     Active Substance: QUETIAPINE FUMARATE
     Indication: MAJOR DEPRESSION
     Dosage: IN THE EVENING
     Route: 065

REACTIONS (7)
  - Psychotic disorder [Recovering/Resolving]
  - Drug ineffective [Unknown]
  - Erectile dysfunction [Unknown]
  - Somnolence [Unknown]
  - Paranoia [Recovering/Resolving]
  - Anxiety [Recovering/Resolving]
  - Weight increased [Unknown]
